FAERS Safety Report 5017101-X (Version None)
Quarter: 2006Q2

REPORT INFORMATION
  Report Type: 
  Country: None (occurrence: None)
  Receive Date: 20060525
  Receipt Date: 20060511
  Transmission Date: 20061013
  Serious: Yes (Life-Threatening, Hospitalization)
  Sender: FDA-Public Use
  Company Number: PAR_0629_2006

PATIENT
  Age: 48 Year
  Sex: Male

DRUGS (8)
  1. METOPROLOL [Suspect]
     Indication: ATRIAL FIBRILLATION
     Dosage: 100MG QDAY
  2. PROPOXYPHENE NAPSYLATE W/ ACETAMINOPHEN [Suspect]
     Indication: UMBILICAL HERNIA REPAIR
     Dosage: DF
  3. DILTIAZEM HCL [Concomitant]
  4. ATORVASTATIN CALCIUM [Concomitant]
  5. LEVOTHYROXINE SODIUM [Concomitant]
  6. FOSINOPRIL SODIUM [Concomitant]
  7. AMITRIPTYLINE HCL [Concomitant]
  8. WARFARIN [Concomitant]

REACTIONS (5)
  - ATRIAL FIBRILLATION [None]
  - BRADYCARDIA [None]
  - DIZZINESS [None]
  - DRUG INTERACTION [None]
  - HYPERHIDROSIS [None]
